FAERS Safety Report 8911816 (Version 2)
Quarter: 2012Q4

REPORT INFORMATION
  Report Type: 
  Country: FR (occurrence: FR)
  Receive Date: 20121116
  Receipt Date: 20121207
  Transmission Date: 20130627
  Serious: Yes (Other)
  Sender: FDA-Public Use
  Company Number: FR-JNJFOC-20121105198

PATIENT
  Age: 35 Year
  Sex: Male

DRUGS (3)
  1. REMICADE [Suspect]
     Indication: CROHN^S DISEASE
     Route: 042
  2. REMICADE [Suspect]
     Indication: CROHN^S DISEASE
     Dosage: 20th infusion
     Route: 042
     Dates: start: 20121107
  3. IMUREL [Concomitant]
     Route: 065

REACTIONS (4)
  - Eczema [Unknown]
  - Rash erythematous [Unknown]
  - Rash vesicular [Unknown]
  - Pruritus [Unknown]
